FAERS Safety Report 8617719-9 (Version None)
Quarter: 2012Q3

REPORT INFORMATION
  Report Type: 
  Country: None (occurrence: None)
  Receive Date: 20120824
  Receipt Date: 20120113
  Transmission Date: 20120928
  Serious: No
  Sender: FDA-Public Use
  Company Number: US-ASTRAZENECA-2012SE00548

PATIENT
  Age: 50 Year
  Sex: Male

DRUGS (14)
  1. PROVENTIL-HFA [Concomitant]
     Dosage: 90 MCG/INH, 2 PUFFS Q4H
     Route: 055
     Dates: start: 20110801
  2. TYLENOL ARTHRITIS [Concomitant]
     Route: 048
     Dates: start: 20100401
  3. OMEPRAZOLE [Suspect]
     Route: 048
     Dates: start: 20111027
  4. CELEBREX [Concomitant]
     Route: 048
     Dates: start: 20100401
  5. SPIRIVA [Concomitant]
     Dosage: 1 PUFF PER CAPSULE
     Dates: start: 20110321
  6. PREDNISONE TAB [Concomitant]
     Dosage: 40 MG DAILY X FIVE DAYS
     Route: 048
     Dates: start: 20111219, end: 20111227
  7. ZITHROMAX [Concomitant]
     Dosage: 500 MG X 1 DOSE THEN 250 MG DAILY FOR 4 DAYS
  8. HYDROCHLOROTHIAZIDE [Concomitant]
     Route: 048
     Dates: start: 20110628
  9. LISINOPRIL [Suspect]
     Route: 048
     Dates: start: 20111211
  10. FLUOGEN [Concomitant]
     Dates: start: 20100920
  11. ALBUTEROL SULFATE [Concomitant]
     Dosage: 2.5 MG/3 ML (0.083%) 3 MILLILITERS Q4HRS AS NEEDED
     Route: 055
     Dates: start: 20100811
  12. SYMBICORT [Suspect]
     Dosage: 160/4.5 MCG, TWO PUFFS TWO TIMES A DAY
     Route: 055
     Dates: start: 20100331
  13. NASAL SPRAY [Concomitant]
     Dosage: 1-2 SPRAYS AS NEEDED
     Dates: start: 20111102
  14. ACETYLCYSTEINE [Concomitant]
     Dosage: 1 VIAL INHALED TWICE DAILY AS NEEDED
     Route: 055
     Dates: start: 20110304

REACTIONS (8)
  - WHEEZING [None]
  - ORAL CANDIDIASIS [None]
  - CHRONIC OBSTRUCTIVE PULMONARY DISEASE [None]
  - ECZEMA [None]
  - HYPERTENSION [None]
  - ASTHMA [None]
  - SPUTUM RETENTION [None]
  - SPUTUM DISCOLOURED [None]
